FAERS Safety Report 4463754-4 (Version None)
Quarter: 2004Q3

REPORT INFORMATION
  Report Type: 
  Country: None (occurrence: None)
  Receive Date: 20040929
  Receipt Date: 20040914
  Transmission Date: 20050211
  Serious: Yes (Hospitalization)
  Sender: FDA-Public Use
  Company Number: FR_040904767

PATIENT
  Age: 22 Year
  Sex: Male

DRUGS (9)
  1. ZYPREXA [Suspect]
     Indication: PSYCHOTIC DISORDER
     Dosage: 30 MG/1 DAY
     Dates: end: 20040713
  2. SOLIAN (AMISULPRIDE) [Concomitant]
  3. THERALENE (ALIMEMAZINE TARTRATE) [Concomitant]
  4. LOXAPINE SUCCINATE [Concomitant]
  5. TRANXENE [Concomitant]
  6. PIASCLEDINE [Concomitant]
  7. LEPTICUR (TROPATEPINE HYDROCHLORIDE) [Concomitant]
  8. SULFARLEM (ANETHOLE TRITHIONE) [Concomitant]
  9. CLAMOXYL (AMOXICILLIN SODIUM) [Concomitant]

REACTIONS (4)
  - CONSTIPATION [None]
  - FAECALOMA [None]
  - INTESTINAL OBSTRUCTION [None]
  - URINARY RETENTION [None]
